FAERS Safety Report 4305039-2 (Version None)
Quarter: 2004Q1

REPORT INFORMATION
  Report Type: 
  Country: None (occurrence: None)
  Receive Date: 20040225
  Receipt Date: 20040225
  Transmission Date: 20041129
  Serious: Yes (Life-Threatening)
  Sender: FDA-Public Use
  Company Number: None

PATIENT
  Sex: Male

DRUGS (4)
  1. HYDROMORPHONE [Suspect]
     Indication: PAIN
     Dosage: 2 MG IV Q 3 H
     Route: 042
     Dates: start: 20031017, end: 20031018
  2. MORPHINE [Concomitant]
  3. OXYCODONE HCL [Concomitant]
  4. RANITIDINE [Concomitant]

REACTIONS (7)
  - BLOOD PRESSURE INCREASED [None]
  - COMA [None]
  - DYSPHASIA [None]
  - HEART RATE INCREASED [None]
  - OXYGEN SATURATION DECREASED [None]
  - RESPIRATORY DISTRESS [None]
  - SKIN DISCOLOURATION [None]
